FAERS Safety Report 5871677-9 (Version None)
Quarter: 2008Q3

REPORT INFORMATION
  Report Type: 
  Country: None (occurrence: None)
  Receive Date: 20080905
  Receipt Date: 20080828
  Transmission Date: 20090109
  Serious: Yes (Other)
  Sender: FDA-Public Use
  Company Number: BR-BAYER-200817696LA

PATIENT
  Age: 29 Year
  Sex: Female
  Weight: 72 kg

DRUGS (1)
  1. YAZ [Suspect]
     Indication: ORAL CONTRACEPTION
     Route: 048
     Dates: start: 20080731

REACTIONS (8)
  - ABDOMINAL DISTENSION [None]
  - BREAST SWELLING [None]
  - HEADACHE [None]
  - IRRITABILITY [None]
  - PAIN [None]
  - SOMNOLENCE [None]
  - SWELLING [None]
  - WITHDRAWAL BLEEDING IRREGULAR [None]
